FAERS Safety Report 18674540 (Version 7)
Quarter: 2021Q3

REPORT INFORMATION
  Report Type: Report from Study
  Country: US (occurrence: US)
  Receive Date: 20201229
  Receipt Date: 20210720
  Transmission Date: 20211014
  Serious: Yes (Other)
  Sender: FDA-Public Use
  Company Number: NVSC2020US342227

PATIENT
  Sex: Male

DRUGS (2)
  1. ENTRESTO [Suspect]
     Active Substance: SACUBITRIL\VALSARTAN
     Dosage: UNK
     Route: 048
  2. ENTRESTO [Suspect]
     Active Substance: SACUBITRIL\VALSARTAN
     Indication: PRODUCT USED FOR UNKNOWN INDICATION
     Dosage: 1 DF, BID
     Route: 048
     Dates: start: 202010

REACTIONS (6)
  - Fatigue [Not Recovered/Not Resolved]
  - Weight decreased [Unknown]
  - Atrial fibrillation [Recovered/Resolved]
  - Pulmonary oedema [Unknown]
  - Dyspnoea exertional [Not Recovered/Not Resolved]
  - Wound complication [Unknown]
